FAERS Safety Report 23619264 (Version 2)
Quarter: 2024Q1

REPORT INFORMATION
  Report Type: Spontaneous
  Country: US (occurrence: None)
  Receive Date: 20240311
  Receipt Date: 20240320
  Transmission Date: 20240410
  Serious: Yes (Hospitalization)
  Sender: FDA-Public Use
  Company Number: US-ROCHE-3521110

PATIENT
  Age: 72 Year
  Sex: Female
  Weight: 79.3 kg

DRUGS (18)
  1. TENECTEPLASE [Suspect]
     Active Substance: TENECTEPLASE
     Indication: Cerebrovascular accident
     Route: 065
     Dates: start: 20240218, end: 20240218
  2. ASPIRIN [Concomitant]
     Active Substance: ASPIRIN
  3. ALPRAZOLAM [Concomitant]
     Active Substance: ALPRAZOLAM
     Dosage: TAKES EVERY NIGHT
  4. FENOFIBRATE [Concomitant]
     Active Substance: FENOFIBRATE
  5. TRELEGY ELLIPTA [Concomitant]
     Active Substance: FLUTICASONE FUROATE\UMECLIDINIUM BROMIDE\VILANTEROL TRIFENATATE
     Dosage: DOSAGE: 100-62-25; ONE PUFF ONCE A DAY
     Route: 055
  6. GABAPENTIN [Concomitant]
     Active Substance: GABAPENTIN
     Dosage: TAKES 2 TABLETS, 3 TIMES PER DAY
  7. OMEPRAZOLE [Concomitant]
     Active Substance: OMEPRAZOLE
  8. VENLAFAXINE HYDROCHLORIDE [Concomitant]
     Active Substance: VENLAFAXINE HYDROCHLORIDE
  9. ATORVASTATIN [Concomitant]
     Active Substance: ATORVASTATIN
  10. CARBAMAZEPINE [Concomitant]
     Active Substance: CARBAMAZEPINE
  11. CLOPIDOGREL [Concomitant]
     Active Substance: CLOPIDOGREL BISULFATE
  12. METOPROLOL TARTRATE [Concomitant]
     Active Substance: METOPROLOL TARTRATE
  13. VITAMIN C [Concomitant]
     Active Substance: ASCORBIC ACID
  14. CRANBERRY [Concomitant]
     Active Substance: CRANBERRY
     Dosage: TAKES 3 CAPSULES, ONCE A DAY
  15. BENADRYL [Concomitant]
     Active Substance: DIPHENHYDRAMINE HYDROCHLORIDE
     Dosage: TAKES AT NIGHT
  16. LOSARTAN [Concomitant]
     Active Substance: LOSARTAN
  17. LOPERAMIDE [Concomitant]
     Active Substance: LOPERAMIDE
     Indication: Diarrhoea
  18. NICOTINE [Concomitant]
     Active Substance: NICOTINE

REACTIONS (4)
  - Cholecystitis [Unknown]
  - Blood pressure decreased [Recovered/Resolved]
  - Abdominal pain [Unknown]
  - Off label use [Unknown]

NARRATIVE: CASE EVENT DATE: 20240218
